FAERS Safety Report 7668235 (Version 2)
Quarter: 2013Q3

REPORT INFORMATION
  Report Type: Spontaneous
  Country: US (occurrence: US)
  Receive Date: 20101115
  Receipt Date: 20130805
  Transmission Date: 20140515
  Serious: Yes (Other)
  Sender: FDA-Public Use
  Company Number: US-ROCHE-718933

PATIENT
  Age: 23 Year
  Sex: Male
  Weight: 86.2 kg

DRUGS (1)
  1. ACCUTANE [Suspect]
     Indication: ACNE
     Route: 065
     Dates: start: 1999, end: 2000

REACTIONS (6)
  - Crohn^s disease [Unknown]
  - Small intestinal obstruction [Unknown]
  - Gastrointestinal injury [Unknown]
  - Colitis [Unknown]
  - Iron deficiency anaemia [Unknown]
  - Inflammatory bowel disease [Unknown]
